FAERS Safety Report 5404673-6 (Version None)
Quarter: 2007Q3

REPORT INFORMATION
  Report Type: 
  Country: None (occurrence: None)
  Receive Date: 20070731
  Receipt Date: 20070717
  Transmission Date: 20080115
  Serious: Yes (Other)
  Sender: FDA-Public Use
  Company Number: E3810-01097-SPO-CA

PATIENT
  Weight: 3 kg

DRUGS (1)
  1. RABEPRAZOLE SODIUM [Suspect]
     Dosage: 20 MG, 2 IN 1 D, TRANSPLACENTAL
     Route: 064
     Dates: start: 20060907, end: 20060929

REACTIONS (4)
  - CARDIAC MURMUR [None]
  - DRUG EXPOSURE DURING PREGNANCY [None]
  - NEONATAL DISORDER [None]
  - PREMATURE BABY [None]
